FAERS Safety Report 6836624-1 (Version None)
Quarter: 2010Q3

REPORT INFORMATION
  Report Type: 
  Country: None (occurrence: None)
  Receive Date: 20100713
  Receipt Date: 20100709
  Transmission Date: 20110219
  Serious: Yes (Death)
  Sender: FDA-Public Use
  Company Number: PHHY2010JP45247

PATIENT
  Age: 17 Year
  Sex: Female

DRUGS (4)
  1. TEGRETOL [Suspect]
     Indication: STATUS EPILEPTICUS
     Dosage: UNK
  2. PHENYTOIN SODIUM [Concomitant]
     Indication: STATUS EPILEPTICUS
     Dosage: UNK,UNK
  3. DORMICUM                                /SWE/ [Concomitant]
     Indication: STATUS EPILEPTICUS
     Dosage: UNK,UNK
  4. DIPRIVAN [Concomitant]
     Indication: STATUS EPILEPTICUS
     Dosage: UNK,UNK

REACTIONS (1)
  - SEPSIS [None]
